FAERS Safety Report 8679271 (Version 2)
Quarter: 2013Q1

REPORT INFORMATION
  Report Type: Spontaneous
  Country: BR (occurrence: BR)
  Receive Date: 20120724
  Receipt Date: 20130201
  Transmission Date: 20140127
  Serious: Yes (Death, Other)
  Sender: FDA-Public Use
  Company Number: PHHY2012BR062822

PATIENT
  Sex: Male

DRUGS (5)
  1. DIOVAN [Suspect]
     Dosage: 1 DF, DAILY
     Route: 048
  2. CONCOR [Suspect]
  3. UNSPECIFIED INGREDIENT [Suspect]
  4. MAREVAN [Concomitant]
     Indication: ARRHYTHMIA
     Dosage: 1 DF, DAILY
     Route: 048
  5. LASIX [Concomitant]
     Indication: POLLAKIURIA
     Dosage: 1.5 DF, DAILY

REACTIONS (7)
  - Septic shock [Fatal]
  - Spinal cord infection [Unknown]
  - Urinary tract disorder [Not Recovered/Not Resolved]
  - Pain in extremity [Unknown]
  - Gait disturbance [Unknown]
  - Dysuria [Not Recovered/Not Resolved]
  - Malaise [Not Recovered/Not Resolved]
